FAERS Safety Report 6574508-7 (Version None)
Quarter: 2010Q1

REPORT INFORMATION
  Report Type: 
  Country: None (occurrence: None)
  Receive Date: 20100209
  Receipt Date: 20091022
  Transmission Date: 20100710
  Serious: No
  Sender: FDA-Public Use
  Company Number: A0812986A

PATIENT
  Age: 62 Year
  Sex: Female

DRUGS (4)
  1. PAXIL [Suspect]
     Indication: DEPRESSION
     Dosage: 20MG PER DAY
     Route: 048
     Dates: start: 20090924
  2. WELLBUTRIN [Concomitant]
  3. PRIMIDONE [Concomitant]
  4. VITAMINS [Concomitant]

REACTIONS (2)
  - CONSTIPATION [None]
  - INTENTION TREMOR [None]
